FAERS Safety Report 12660471 (Version 1)
Quarter: 2016Q3

REPORT INFORMATION
  Report Type: Report from Study
  Country: US (occurrence: US)
  Receive Date: 20160817
  Receipt Date: 20160817
  Transmission Date: 20161109
  Serious: Yes (Hospitalization)
  Sender: FDA-Public Use
  Company Number: US-ABBVIE-16K-163-1694577-00

PATIENT
  Age: 66 Year
  Sex: Male
  Weight: 140.74 kg

DRUGS (1)
  1. HUMIRA [Suspect]
     Active Substance: ADALIMUMAB
     Indication: RHEUMATOID ARTHRITIS
     Route: 058
     Dates: start: 2013

REACTIONS (13)
  - Renal disorder [Not Recovered/Not Resolved]
  - Dehydration [Unknown]
  - Hypotension [Unknown]
  - Localised oedema [Recovering/Resolving]
  - Pericardial effusion [Recovering/Resolving]
  - Pulmonary oedema [Recovering/Resolving]
  - Cardiac disorder [Unknown]
  - Oedema peripheral [Recovering/Resolving]
  - Muscle atrophy [Not Recovered/Not Resolved]
  - Peripheral swelling [Recovering/Resolving]
  - Pericardial effusion [Recovered/Resolved]
  - Dyspnoea [Not Recovered/Not Resolved]
  - Dysuria [Not Recovered/Not Resolved]

NARRATIVE: CASE EVENT DATE: 2016
